FAERS Safety Report 9496784 (Version 1)
Quarter: 2013Q3

REPORT INFORMATION
  Report Type: Spontaneous
  Country: US (occurrence: None)
  Receive Date: 20130903
  Receipt Date: 20130903
  Transmission Date: 20140515
  Serious: Yes (Other)
  Sender: FDA-Public Use
  Company Number: None

PATIENT
  Age: 41 Year
  Sex: Female
  Weight: 61.24 kg

DRUGS (2)
  1. ADDERALL XR [Suspect]
     Indication: ATTENTION DEFICIT/HYPERACTIVITY DISORDER
     Dosage: 2 PILLS TWICE DAILY TAKEN BY MOUTH
     Route: 048
     Dates: start: 20130814, end: 20130828
  2. CENTRUM MULTI VITAMIN [Concomitant]

REACTIONS (7)
  - Somnolence [None]
  - Fatigue [None]
  - Disturbance in attention [None]
  - Depression [None]
  - Paradoxical drug reaction [None]
  - Product substitution issue [None]
  - Product quality issue [None]
